FAERS Safety Report 5082640-2 (Version None)
Quarter: 2006Q3

REPORT INFORMATION
  Report Type: 
  Country: None (occurrence: None)
  Receive Date: 20060814
  Receipt Date: 20060731
  Transmission Date: 20061208
  Serious: Yes (Hospitalization)
  Sender: FDA-Public Use
  Company Number: 14533

PATIENT
  Age: 52 Year
  Sex: Male

DRUGS (4)
  1. CARBOPLATIN [Suspect]
     Indication: MESOTHELIOMA
     Dosage: 440 MG IV
     Route: 042
     Dates: start: 20060619
  2. ZOPHREN [Concomitant]
  3. SOLU-MEDROL [Concomitant]
  4. ALIMTA [Concomitant]

REACTIONS (6)
  - HYPERSENSITIVITY [None]
  - HYPERTENSION [None]
  - LARYNGEAL OEDEMA [None]
  - OEDEMA [None]
  - SENSE OF OPPRESSION [None]
  - URTICARIA [None]
